FAERS Safety Report 14818478 (Version 1)
Quarter: 2018Q2

REPORT INFORMATION
  Report Type: Spontaneous
  Country: US (occurrence: US)
  Receive Date: 20180427
  Receipt Date: 20180427
  Transmission Date: 20180711
  Serious: Yes (Death, Other)
  Sender: FDA-Public Use
  Company Number: US-CIPLA LTD.-2018US16640

PATIENT

DRUGS (4)
  1. CARBOPLATIN. [Suspect]
     Active Substance: CARBOPLATIN
     Indication: CERVIX CARCINOMA STAGE I
  2. PACLITAXEL. [Suspect]
     Active Substance: PACLITAXEL
     Indication: CERVIX CARCINOMA STAGE I
  3. PACLITAXEL. [Suspect]
     Active Substance: PACLITAXEL
     Indication: CLEAR CELL CARCINOMA OF CERVIX
     Dosage: UNK
     Route: 065
  4. CARBOPLATIN. [Suspect]
     Active Substance: CARBOPLATIN
     Indication: CLEAR CELL CARCINOMA OF CERVIX
     Dosage: UNK
     Route: 065

REACTIONS (4)
  - Clear cell carcinoma of cervix [Fatal]
  - Malignant neoplasm progression [Unknown]
  - Cervix carcinoma stage I [Fatal]
  - Neoplasm recurrence [Unknown]
